FAERS Safety Report 7985877-5 (Version None)
Quarter: 2011Q4

REPORT INFORMATION
  Report Type: 
  Country: None (occurrence: None)
  Receive Date: 20111007
  Receipt Date: 20110825
  Transmission Date: 20120403
  Serious: No
  Sender: FDA-Public Use
  Company Number: 2011HGS-002500

PATIENT
  Age: 56 Year
  Sex: Female
  Weight: 77.1115 kg

DRUGS (17)
  1. BENLYSTA [Suspect]
     Indication: SYSTEMIC LUPUS ERYTHEMATOSUS
     Dosage: INTRAVENOUS DRIP
     Route: 041
     Dates: start: 20110822, end: 20110822
  2. PLAQUENIL (HYDROXYCHLOROQUINE SULFATE) (HYDROXYCHLOROQUINE SULFATE) [Concomitant]
  3. SINGULAIR (MONTELUKAST) (MONTELUKAST) [Concomitant]
  4. DEXILANT (PROTON PUMP INHIBITORS) (DEXLANSOPRAZOLE) [Concomitant]
  5. PREDNISONE [Concomitant]
  6. QVAR (BECLOMETASONE DIPROPIONATE) (BECLOMETASONE DIPROPIONATE) [Concomitant]
  7. XOPENEX (LEVOSALBUTAMOL) (LEVOSALBUTAMOL) [Concomitant]
  8. OPTI-FRESH (TETRYZOLINE HYDROCHLORIDE) (TETRYZOLINE HYDROCHLORIDE) [Concomitant]
  9. FIBERCON (POLYCARBOPHIL CALCIUM) (POLYCHARBOPHIL CALCIUM) [Concomitant]
  10. COUMADIN [Concomitant]
  11. ADVAIR (SERETIDE MITE) (FLUTICASONE PROPINOATE, SALMETEROL XINAFOATE) [Concomitant]
  12. EPI-PEN (EPINEPHRINE) (EPINEPHRINE) [Concomitant]
  13. NITROGLYCERIN [Concomitant]
  14. VITAMIN D (ERGOCALCIFEROL) (ERGOCALCIFEROL) [Concomitant]
  15. CLONAZEPAM [Concomitant]
  16. PROVENTIL (SALBUTAMOL SULFATE) (SALBUTAMOL SULFATE) [Concomitant]
  17. LASIX (LASIX /SCH/) (FUROSEMIDE, FUROSEMIDE SODIUM) [Concomitant]

REACTIONS (17)
  - COUGH [None]
  - CHEST PAIN [None]
  - NECK PAIN [None]
  - NAUSEA [None]
  - DYSPEPSIA [None]
  - OROPHARYNGEAL PAIN [None]
  - FLATULENCE [None]
  - TREMOR [None]
  - VISION BLURRED [None]
  - ARTHRALGIA [None]
  - LIMB DISCOMFORT [None]
  - PAIN IN EXTREMITY [None]
  - WHEEZING [None]
  - DIZZINESS [None]
  - NASAL CONGESTION [None]
  - DISCOMFORT [None]
  - MUSCULOSKELETAL PAIN [None]
